FAERS Safety Report 10950010 (Version 3)
Quarter: 2017Q1

REPORT INFORMATION
  Report Type: Report from Study
  Country: US (occurrence: US)
  Receive Date: 20150324
  Receipt Date: 20170201
  Transmission Date: 20170428
  Serious: No
  Sender: FDA-Public Use
  Company Number: US-EXELIXIS-CABO-14005031

PATIENT
  Sex: Male
  Weight: 103.6 kg

DRUGS (7)
  1. COMETRIQ [Suspect]
     Active Substance: CABOZANTINIB S-MALATE
     Dosage: 100 MG, QD
     Route: 048
     Dates: start: 20151001, end: 201603
  2. COMETRIQ [Suspect]
     Active Substance: CABOZANTINIB S-MALATE
     Indication: RENAL CANCER
     Dosage: 100 MG, QD
     Route: 048
     Dates: start: 20140725, end: 20141217
  3. COMETRIQ [Suspect]
     Active Substance: CABOZANTINIB S-MALATE
     Dosage: 100 MG, QD
     Route: 048
     Dates: start: 201605
  4. XGEVA [Concomitant]
     Active Substance: DENOSUMAB
  5. LISINOPRIL. [Concomitant]
     Active Substance: LISINOPRIL
  6. COMETRIQ [Suspect]
     Active Substance: CABOZANTINIB S-MALATE
     Dosage: 100 MG, QD
     Route: 048
     Dates: start: 20150410, end: 20150925
  7. FORTEO [Concomitant]
     Active Substance: TERIPARATIDE

REACTIONS (15)
  - Food intolerance [Unknown]
  - Bone loss [Unknown]
  - Dyspnoea [Not Recovered/Not Resolved]
  - Bone lesion [Unknown]
  - Off label use [Unknown]
  - Pain in extremity [Not Recovered/Not Resolved]
  - Fatigue [Not Recovered/Not Resolved]
  - Burning sensation [Unknown]
  - Muscle spasms [Unknown]
  - Tooth disorder [Unknown]
  - Palmar-plantar erythrodysaesthesia syndrome [Unknown]
  - Impaired healing [Not Recovered/Not Resolved]
  - Hyperkeratosis [Not Recovered/Not Resolved]
  - Scar [Not Recovered/Not Resolved]
  - Blood pressure increased [Recovering/Resolving]
